FAERS Safety Report 8523583-9 (Version None)
Quarter: 2012Q3

REPORT INFORMATION
  Report Type: 
  Country: None (occurrence: None)
  Receive Date: 20120720
  Receipt Date: 20100615
  Transmission Date: 20120928
  Serious: Yes (Hospitalization, Other)
  Sender: FDA-Public Use
  Company Number: US-BAYER-201018537NA

PATIENT
  Age: 37 Year
  Sex: Female

DRUGS (19)
  1. BUPROPION HYDROCHLORIDE [Concomitant]
     Dosage: 300 MG (DAILY DOSE), ,
  2. LEVOTHYROXINE SODIUM [Concomitant]
  3. DROSPIRENONE AND ETHINYL ESTRADIOL [Suspect]
     Indication: CONTRACEPTION
     Route: 048
     Dates: start: 20080703, end: 20081122
  4. PHENTERMINE [Concomitant]
  5. ASCORBIC ACID [Concomitant]
  6. YAZ [Suspect]
     Indication: CONTRACEPTION
     Route: 048
     Dates: start: 20050320, end: 20080614
  7. IBUPROFEN [Concomitant]
     Dates: start: 19950101
  8. LEVOTHYROXINE SODIUM [Concomitant]
  9. POTASSIUM CHLORIDE [Concomitant]
  10. WELLBUTRIN XL [Concomitant]
     Indication: ANXIETY
     Dates: start: 20050101
  11. SYNTHROID [Concomitant]
     Indication: HYPOTHYROIDISM
     Dates: start: 19950101
  12. PERCOCET-5 [Concomitant]
  13. YASMIN [Suspect]
     Indication: CONTRACEPTION
     Dates: start: 20050320, end: 20080614
  14. WELLBUTRIN XL [Concomitant]
     Indication: DEPRESSION
  15. VALTREX [Concomitant]
  16. AMNESTEEM [Concomitant]
  17. THYROID TAB [Concomitant]
  18. SPIRONOLACTONE [Concomitant]
  19. ADVIL [Concomitant]

REACTIONS (5)
  - CHOLELITHIASIS [None]
  - NAUSEA [None]
  - ABDOMINAL PAIN UPPER [None]
  - CHOLECYSTITIS [None]
  - VOMITING [None]
